FAERS Safety Report 8113327 (Version 2)
Quarter: 2013Q2

REPORT INFORMATION
  Report Type: Spontaneous
  Country: US (occurrence: US)
  Receive Date: 20110830
  Receipt Date: 20130509
  Transmission Date: 20140414
  Serious: Yes (Hospitalization)
  Sender: FDA-Public Use
  Company Number: US-GLAXOSMITHKLINE-A0925621A

PATIENT
  Age: 61 Year
  Sex: Male

DRUGS (1)
  1. AVANDIA [Suspect]
     Indication: DIABETES MELLITUS
     Dosage: 4MG PER DAY
     Route: 048
     Dates: start: 20080327, end: 20080528

REACTIONS (4)
  - Arterial occlusive disease [Not Recovered/Not Resolved]
  - Pain [Unknown]
  - Coronary arterial stent insertion [Unknown]
  - Catheterisation cardiac [Unknown]
